FAERS Safety Report 15464335 (Version 1)
Quarter: 2018Q4

REPORT INFORMATION
  Report Type: Spontaneous
  Country: IT (occurrence: IT)
  Receive Date: 20181004
  Receipt Date: 20181004
  Transmission Date: 20190204
  Serious: Yes (Hospitalization)
  Sender: FDA-Public Use
  Company Number: IT-PFIZER INC-19447

PATIENT
  Age: 54 Year
  Sex: Female

DRUGS (3)
  1. OXALIPLATIN. [Suspect]
     Active Substance: OXALIPLATIN
     Dosage: 85 MG, CYCLIC
     Route: 042
     Dates: start: 20060502, end: 20061107
  2. LEDERFOLIN [Concomitant]
     Active Substance: LEUCOVORIN CALCIUM
     Dosage: 65 MG, UNK
     Route: 042
     Dates: start: 20060502, end: 20061107
  3. FLUOROURACILE [Concomitant]
     Active Substance: FLUOROURACIL
     Dosage: 560 MG, UNK
     Route: 042
     Dates: start: 20060502, end: 20061107

REACTIONS (1)
  - Acute myocardial infarction [Unknown]

NARRATIVE: CASE EVENT DATE: 20061121
